FAERS Safety Report 8041036-1 (Version None)
Quarter: 2012Q1

REPORT INFORMATION
  Report Type: 
  Country: None (occurrence: None)
  Receive Date: 20120109
  Receipt Date: 20111229
  Transmission Date: 20120608
  Serious: Yes (Hospitalization)
  Sender: FDA-Public Use
  Company Number: DKLU1075679

PATIENT
  Age: 1 Year
  Sex: Male

DRUGS (1)
  1. SABRIL [Suspect]
     Indication: INFANTILE SPASMS
     Dosage: 400 MG MILLIGRAM(S) , 2 IN 1 D, ORAL
     Route: 048

REACTIONS (2)
  - MALAISE [None]
  - RESPIRATORY DISTRESS [None]
